FAERS Safety Report 17637225 (Version 1)
Quarter: 2020Q2

REPORT INFORMATION
  Report Type: Spontaneous
  Country: FR (occurrence: FR)
  Receive Date: 20200407
  Receipt Date: 20200407
  Transmission Date: 20200713
  Serious: Yes (Hospitalization)
  Sender: FDA-Public Use
  Company Number: FR-JNJFOC-20200322774

PATIENT
  Age: 75 Year
  Sex: Male
  Weight: 70 kg

DRUGS (3)
  1. TRAMADOL HYDROCHLORIDE. [Suspect]
     Active Substance: TRAMADOL HYDROCHLORIDE
     Dosage: 50 MILLIGRAM, 1/DAY
     Route: 048
     Dates: start: 20200204, end: 20200205
  2. TRAMADOL HYDROCHLORIDE. [Suspect]
     Active Substance: TRAMADOL HYDROCHLORIDE
     Indication: PAIN
     Dosage: 150 MILLIGRAM, 1/DAY
     Route: 048
     Dates: start: 20190828, end: 20200203
  3. TRAMADOL HYDROCHLORIDE. [Suspect]
     Active Substance: TRAMADOL HYDROCHLORIDE
     Indication: MUSCULOSKELETAL PAIN
     Dosage: 300 MILLIGRAM, 1/DAY
     Route: 048
     Dates: start: 20200204, end: 20200205

REACTIONS (2)
  - Vertigo [Recovered/Resolved]
  - Hallucination, visual [Recovered/Resolved]

NARRATIVE: CASE EVENT DATE: 20200206
